FAERS Safety Report 9024793 (Version 1)
Quarter: 2013Q1

REPORT INFORMATION
  Report Type: Spontaneous
  Country: US (occurrence: US)
  Receive Date: 20130121
  Receipt Date: 20130121
  Transmission Date: 20140127
  Serious: No
  Sender: FDA-Public Use
  Company Number: US-BIOGENIDEC-2013BI002851

PATIENT
  Age: 44 None
  Sex: Female
  Weight: 110 kg

DRUGS (3)
  1. TYSABRI [Suspect]
     Indication: MULTIPLE SCLEROSIS
     Route: 042
     Dates: start: 20100730
  2. AVONEX [Concomitant]
     Indication: MULTIPLE SCLEROSIS
     Route: 030
  3. UNKNOWN MEDICATION [Concomitant]

REACTIONS (15)
  - Cough [Unknown]
  - Stomatitis [Unknown]
  - Depression [Not Recovered/Not Resolved]
  - Anaemia [Unknown]
  - Pain [Unknown]
  - Vitamin D decreased [Not Recovered/Not Resolved]
  - Diabetes mellitus [Not Recovered/Not Resolved]
  - Mental status changes [Unknown]
  - Muscular weakness [Unknown]
  - Hypoaesthesia [Unknown]
  - Back pain [Unknown]
  - Headache [Unknown]
  - Dyspnoea [Unknown]
  - Multiple sclerosis relapse [Unknown]
  - Chest pain [Unknown]
